FAERS Safety Report 16791497 (Version 1)
Quarter: 2019Q3

REPORT INFORMATION
  Report Type: Spontaneous
  Country: DE (occurrence: DE)
  Receive Date: 20190910
  Receipt Date: 20190910
  Transmission Date: 20191005
  Serious: Yes (Other)
  Sender: FDA-Public Use
  Company Number: DE-BAXTER-2019BAX017370

PATIENT
  Age: 1 Day
  Sex: Female
  Weight: 2.39 kg

DRUGS (9)
  1. EPIRUBICIN [Suspect]
     Active Substance: EPIRUBICIN
     Indication: INFLAMMATORY CARCINOMA OF THE BREAST
     Dosage: WEEK 22+5, 25+6, ?, 31+6
     Route: 064
     Dates: start: 20181001, end: 20181204
  2. DIMETINDENE [Concomitant]
     Active Substance: DIMETHINDENE
     Indication: INFLAMMATORY CARCINOMA OF THE BREAST
     Dosage: 4 [MG/D ]
     Route: 064
  3. ENDOXAN 1G [Suspect]
     Active Substance: CYCLOPHOSPHAMIDE
     Indication: INFLAMMATORY CARCINOMA OF THE BREAST
     Dosage: WEEK 22+5, 25+6, ?, 31+6
     Route: 064
     Dates: start: 20181001, end: 20181204
  4. PACLITAXEL. [Suspect]
     Active Substance: PACLITAXEL
     Indication: INFLAMMATORY CARCINOMA OF THE BREAST
     Dosage: 12 CYCLES, UNKNOWN WHEN
     Route: 064
     Dates: start: 20181227, end: 20181227
  5. GRANISETRON [Concomitant]
     Active Substance: GRANISETRON
     Indication: INFLAMMATORY CARCINOMA OF THE BREAST
     Dosage: 1 [MG/D ]
     Route: 064
  6. DEXAMETHASONE. [Suspect]
     Active Substance: DEXAMETHASONE
     Indication: INFLAMMATORY CARCINOMA OF THE BREAST
     Dosage: 8 [MG/D ]/ 4-8 MG/D
     Route: 064
     Dates: start: 20181001, end: 20181001
  7. UROMITEXAN [Concomitant]
     Active Substance: MESNA
     Indication: DRUG TOXICITY PROPHYLAXIS
     Dosage: 400 [MG/D ]
     Route: 064
  8. EMEND [Concomitant]
     Active Substance: APREPITANT
     Indication: PROPHYLAXIS OF NAUSEA AND VOMITING
     Route: 064
  9. RANITIDINE. [Concomitant]
     Active Substance: RANITIDINE
     Indication: INFLAMMATORY CARCINOMA OF THE BREAST
     Dosage: 50 [MG/D ]
     Route: 064

REACTIONS (1)
  - Small for dates baby [Recovering/Resolving]

NARRATIVE: CASE EVENT DATE: 20190119
